FAERS Safety Report 4826322-8 (Version None)
Quarter: 2005Q4

REPORT INFORMATION
  Report Type: 
  Country: None (occurrence: None)
  Receive Date: 20051111
  Receipt Date: 20051102
  Transmission Date: 20060501
  Serious: Yes (Other)
  Sender: FDA-Public Use
  Company Number: AT-ROCHE-423626

PATIENT
  Age: 70 Year
  Sex: Male

DRUGS (4)
  1. CELLCEPT [Suspect]
     Route: 065
     Dates: start: 20051005, end: 20051019
  2. SANDIMMUNE [Concomitant]
  3. SELOKEN RETARD [Concomitant]
  4. AQUAPHORIL [Concomitant]

REACTIONS (3)
  - ARTHRITIS [None]
  - INFLAMMATION [None]
  - PYREXIA [None]
